FAERS Safety Report 5212673-4 (Version None)
Quarter: 2007Q1

REPORT INFORMATION
  Report Type: 
  Country: None (occurrence: None)
  Receive Date: 20061107
  Receipt Date: 20060626
  Transmission Date: 20070707
  Serious: No
  Sender: FDA-Public Use
  Company Number: 200510437BWH

PATIENT
  Age: 80 Year
  Sex: Male

DRUGS (4)
  1. LEVITRA [Suspect]
     Indication: ERECTILE DYSFUNCTION
     Dosage: SEE IMAGE
     Route: 048
  2. BENAZEPRIL HYDROCHLORIDE [Concomitant]
  3. HIGH BLOOD PRESSURE MEDICATION [Concomitant]
  4. ALLERGY MEDICATION [Concomitant]

REACTIONS (1)
  - ERECTILE DYSFUNCTION [None]
